FAERS Safety Report 6164410-7 (Version None)
Quarter: 2009Q2

REPORT INFORMATION
  Report Type: 
  Country: None (occurrence: None)
  Receive Date: 20090421
  Receipt Date: 20090411
  Transmission Date: 20091009
  Serious: Yes (Other)
  Sender: FDA-Public Use
  Company Number: 2009US000848

PATIENT
  Age: 70 Year
  Sex: Female

DRUGS (9)
  1. LEXISCAN [Suspect]
     Indication: SCAN MYOCARDIAL PERFUSION
     Dosage: 0.4MG, IV NOS
     Route: 042
     Dates: start: 20090304, end: 20090304
  2. ZOCOR [Concomitant]
  3. ATENTOLOL (ATENOLOL) [Concomitant]
  4. CHROMAGEN (ASCORBIC ACID) [Concomitant]
  5. AVAPRO (REBESARTAN) [Concomitant]
  6. PRILOSEC [Concomitant]
  7. ASPIRIN [Concomitant]
  8. HYDROCHLOROTHIAZIDE [Concomitant]
  9. CIPRO [Concomitant]

REACTIONS (10)
  - BLOOD PRESSURE DIASTOLIC DECREASED [None]
  - ELECTROCARDIOGRAM POOR R-WAVE PROGRESSION [None]
  - ELECTROCARDIOGRAM QRS COMPLEX ABNORMAL [None]
  - ELECTROCARDIOGRAM QT PROLONGED [None]
  - ELECTROCARDIOGRAM ST-T CHANGE [None]
  - ELECTROCARDIOGRAM T WAVE ABNORMAL [None]
  - HEART RATE INCREASED [None]
  - MYOCARDIAL INFARCTION [None]
  - SINUS ARRHYTHMIA [None]
  - SUPRAVENTRICULAR EXTRASYSTOLES [None]
